FAERS Safety Report 15499227 (Version 2)
Quarter: 2018Q4

REPORT INFORMATION
  Report Type: Spontaneous
  Country: US (occurrence: US)
  Receive Date: 20181015
  Receipt Date: 20181106
  Transmission Date: 20190205
  Serious: No
  Sender: FDA-Public Use
  Company Number: US-CELGENEUS-USA-20181003037

PATIENT
  Age: 47 Year
  Sex: Female

DRUGS (2)
  1. OTEZLA [Suspect]
     Active Substance: APREMILAST
     Dosage: 60 MILLIGRAM
     Route: 048
     Dates: start: 2018
  2. OTEZLA [Suspect]
     Active Substance: APREMILAST
     Indication: PSORIATIC ARTHROPATHY
     Dosage: DUAL STARTER PACK
     Route: 048
     Dates: start: 20180808

REACTIONS (8)
  - Dehydration [Recovered/Resolved]
  - Pain [Recovering/Resolving]
  - Nephrolithiasis [Unknown]
  - Mental impairment [Recovered/Resolved]
  - Depression [Recovering/Resolving]
  - Pruritus [Recovering/Resolving]
  - Feeling abnormal [Recovered/Resolved]
  - Constipation [Recovering/Resolving]

NARRATIVE: CASE EVENT DATE: 201809
